FAERS Safety Report 6602933-4 (Version None)
Quarter: 2010Q1

REPORT INFORMATION
  Report Type: 
  Country: None (occurrence: None)
  Receive Date: 20100226
  Receipt Date: 20100217
  Transmission Date: 20100710
  Serious: Yes (Other)
  Sender: FDA-Public Use
  Company Number: CA-JNJFOC-20100209558

PATIENT
  Sex: Female

DRUGS (2)
  1. EXTRA STRENGTH TYLENOL COLD DAY [Suspect]
     Indication: DRUG USE FOR UNKNOWN INDICATION
  2. PAXIL [Interacting]
     Indication: DRUG USE FOR UNKNOWN INDICATION

REACTIONS (3)
  - DRUG INTERACTION [None]
  - SELF INJURIOUS BEHAVIOUR [None]
  - SEROTONIN SYNDROME [None]
